FAERS Safety Report 17734808 (Version 1)
Quarter: 2020Q2

REPORT INFORMATION
  Report Type: Spontaneous
  Country: FR (occurrence: FR)
  Receive Date: 20200501
  Receipt Date: 20200501
  Transmission Date: 20200714
  Serious: Yes (Hospitalization)
  Sender: FDA-Public Use
  Company Number: FR-TEVA-2020-FR-1228374

PATIENT
  Age: 59 Year
  Sex: Male
  Weight: 75 kg

DRUGS (10)
  1. ATORVASTATINE [Concomitant]
     Active Substance: ATORVASTATIN
  2. ESOMEPRAZOLE. [Concomitant]
     Active Substance: ESOMEPRAZOLE MAGNESIUM
  3. RISPERIDONE. [Suspect]
     Active Substance: RISPERIDONE
     Indication: BIPOLAR DISORDER
     Dosage: 4 MG
     Route: 048
  4. METFORMINE [Concomitant]
     Active Substance: METFORMIN HYDROCHLORIDE
  5. COKENZEN [Concomitant]
     Active Substance: CANDESARTAN CILEXETIL\HYDROCHLOROTHIAZIDE
  6. PREGABALINE [Concomitant]
     Active Substance: PREGABALIN
  7. VESICARE [Concomitant]
     Active Substance: SOLIFENACIN SUCCINATE
  8. ALPRAZOLAM. [Concomitant]
     Active Substance: ALPRAZOLAM
  9. QUETIAPINE. [Suspect]
     Active Substance: QUETIAPINE
     Indication: BIPOLAR DISORDER
     Dosage: 300 MG
     Route: 048
  10. TRULICITY [Concomitant]
     Active Substance: DULAGLUTIDE

REACTIONS (1)
  - Pulmonary embolism [Recovering/Resolving]

NARRATIVE: CASE EVENT DATE: 20200405
